FAERS Safety Report 5354836-3 (Version None)
Quarter: 2007Q2

REPORT INFORMATION
  Report Type: 
  Country: None (occurrence: None)
  Receive Date: 20070611
  Receipt Date: 20070522
  Transmission Date: 20071010
  Serious: Yes (Hospitalization)
  Sender: FDA-Public Use
  Company Number: TPA2007A01147

PATIENT
  Age: 60 Year
  Sex: Female

DRUGS (4)
  1. ROZEREM                     (RAMELTON) [Suspect]
     Dosage: 8 MG, PER ORAL
     Route: 048
  2. LEXAPRO [Concomitant]
  3. XANAX [Concomitant]
  4. IMITREX [Concomitant]

REACTIONS (1)
  - PSYCHOTIC DISORDER [None]
